FAERS Safety Report 7203667-8 (Version None)
Quarter: 2010Q4

REPORT INFORMATION
  Report Type: 
  Country: None (occurrence: None)
  Receive Date: 20101230
  Receipt Date: 20101216
  Transmission Date: 20110411
  Serious: Yes (Hospitalization, Other)
  Sender: FDA-Public Use
  Company Number: PHHY2010CL71352

PATIENT
  Age: 66 Year
  Sex: Female

DRUGS (4)
  1. TAREG D [Suspect]
     Indication: HYPERTENSION
     Dosage: 80/12.5 MG
     Dates: start: 20100501
  2. CHLORDIAZEPOXIDE W/CLIDINIUM BROMIDE [Concomitant]
  3. UREN [Concomitant]
  4. OMEPRAZOLE [Concomitant]

REACTIONS (3)
  - ABDOMINAL PAIN UPPER [None]
  - DEVICE OCCLUSION [None]
  - GASTRIC BYPASS [None]
